FAERS Safety Report 7998366-9 (Version None)
Quarter: 2011Q4

REPORT INFORMATION
  Report Type: 
  Country: None (occurrence: None)
  Receive Date: 20111221
  Receipt Date: 20110818
  Transmission Date: 20120403
  Serious: No
  Sender: FDA-Public Use
  Company Number: US-GLAXOSMITHKLINE-A0941539A

PATIENT
  Sex: Female

DRUGS (5)
  1. LOVAZA [Suspect]
     Indication: BLOOD TRIGLYCERIDES INCREASED
     Dosage: 1CAP PER DAY
     Route: 048
     Dates: start: 20110601, end: 20110801
  2. SYNTHROID [Concomitant]
  3. ACTONEL [Concomitant]
  4. VITAMIN D [Concomitant]
  5. ZOCOR [Concomitant]

REACTIONS (1)
  - DYSGEUSIA [None]
